FAERS Safety Report 9832981 (Version 2)
Quarter: 2014Q2

REPORT INFORMATION
  Report Type: Spontaneous
  Country: IT (occurrence: IT)
  Receive Date: 20140121
  Receipt Date: 20140410
  Transmission Date: 20141212
  Serious: Yes (Other)
  Sender: FDA-Public Use
  Company Number: IT-B.I. PHARMACEUTICALS,INC./RIDGEFIELD-2014-BI-02111IT

PATIENT
  Age: 78 Year
  Sex: Female

DRUGS (5)
  1. PRADAXA [Suspect]
     Indication: ATRIAL FIBRILLATION
     Route: 048
     Dates: start: 20131224, end: 20140102
  2. CARVEDILOL [Concomitant]
     Indication: ATRIAL FIBRILLATION
     Route: 065
  3. SINVACOR [Concomitant]
     Indication: DYSLIPIDAEMIA
     Route: 065
  4. ENAPREN [Concomitant]
     Route: 065
  5. LASIX [Concomitant]
     Route: 065

REACTIONS (4)
  - Abdominal pain upper [Not Recovered/Not Resolved]
  - Fatigue [Not Recovered/Not Resolved]
  - Oesophageal spasm [Not Recovered/Not Resolved]
  - Visual impairment [Not Recovered/Not Resolved]
